FAERS Safety Report 5647711-8 (Version None)
Quarter: 2008Q1

REPORT INFORMATION
  Report Type: 
  Country: None (occurrence: None)
  Receive Date: 20080303
  Receipt Date: 20080220
  Transmission Date: 20080703
  Serious: Yes (Other)
  Sender: FDA-Public Use
  Company Number: FR-PFIZER INC-2008006968

PATIENT
  Sex: Female

DRUGS (7)
  1. LYRICA [Suspect]
     Indication: PAIN
     Dosage: DAILY DOSE:300MG
     Route: 048
  2. LYRICA [Suspect]
     Indication: NEURALGIA
  3. LAMALINE [Concomitant]
     Route: 048
  4. TIAPROFENIC ACID [Concomitant]
     Route: 048
     Dates: start: 20071213, end: 20071218
  5. PANOTILE [Concomitant]
     Route: 001
     Dates: start: 20071213, end: 20071219
  6. TIXOCORTOL PIVALATE [Concomitant]
     Dates: start: 20071213, end: 20071219
  7. HELICIDINE [Concomitant]
     Route: 048
     Dates: start: 20071213, end: 20071219

REACTIONS (2)
  - AMENORRHOEA [None]
  - GENITAL HAEMORRHAGE [None]
